FAERS Safety Report 8197595-1 (Version None)
Quarter: 2012Q1

REPORT INFORMATION
  Report Type: 
  Country: None (occurrence: None)
  Receive Date: 20120227
  Receipt Date: 20111116
  Transmission Date: 20120608
  Serious: No
  Sender: FDA-Public Use
  Company Number: 339579

PATIENT
  Age: 64 Year
  Sex: Male

DRUGS (1)
  1. VICTOZA [Suspect]
     Indication: TYPE 1 DIABETES MELLITUS
     Dosage: 0.6 MG, QD, SUBCUTANEOUS;1.2 MG, QD, SUBCUTANEOUS
     Route: 058

REACTIONS (4)
  - MALAISE [None]
  - CONSTIPATION [None]
  - ASTHENIA [None]
  - ABDOMINAL PAIN UPPER [None]
